FAERS Safety Report 7202809-8 (Version None)
Quarter: 2010Q4

REPORT INFORMATION
  Report Type: 
  Country: None (occurrence: None)
  Receive Date: 20101216
  Receipt Date: 20101130
  Transmission Date: 20110411
  Serious: Yes (Other)
  Sender: FDA-Public Use
  Company Number: GER/UKI/10/0016770

PATIENT
  Age: 59 Year
  Sex: Female

DRUGS (4)
  1. RISPERIDONE [Suspect]
     Indication: SCHIZOPHRENIA
     Dosage: 3 MG, 2 IN 1 D, ORAL, PREVIOUSLY ON LOWER DOSE, ORAL, 2 MG, 2 IN 1 D, ORAL
     Route: 048
     Dates: start: 20080601
  2. RISPERIDONE [Suspect]
     Indication: SCHIZOPHRENIA
     Dosage: 3 MG, 2 IN 1 D, ORAL, PREVIOUSLY ON LOWER DOSE, ORAL, 2 MG, 2 IN 1 D, ORAL
     Route: 048
     Dates: start: 20091101
  3. OMEPRAZOLE [Suspect]
     Indication: DYSPEPSIA
     Dosage: ORAL
     Route: 048
     Dates: start: 20100201
  4. IMUVAC (INFLUENZA VIRUS VACCINE POLYVALENT) [Suspect]
     Indication: INFLUENZA IMMUNISATION
     Dates: start: 20100901

REACTIONS (7)
  - DRUG INTERACTION [None]
  - DYSKINESIA [None]
  - EXTRAPYRAMIDAL DISORDER [None]
  - FATIGUE [None]
  - MUSCULOSKELETAL STIFFNESS [None]
  - RESTLESSNESS [None]
  - TREMOR [None]
